FAERS Safety Report 7951759-8 (Version None)
Quarter: 2011Q4

REPORT INFORMATION
  Report Type: 
  Country: None (occurrence: None)
  Receive Date: 20111201
  Receipt Date: 20111124
  Transmission Date: 20120403
  Serious: Yes (Other)
  Sender: FDA-Public Use
  Company Number: BE-JNJFOC-20111111822

PATIENT
  Sex: Male

DRUGS (2)
  1. ENOXAPARIN SODIUM [Concomitant]
     Indication: ILL-DEFINED DISORDER
  2. XARELTO [Suspect]
     Indication: KNEE ARTHROPLASTY
     Route: 065

REACTIONS (6)
  - LIP SWELLING [None]
  - ERYTHEMA [None]
  - RASH [None]
  - HYPERSENSITIVITY [None]
  - LIVER DISORDER [None]
  - PRURITUS [None]
